FAERS Safety Report 7652849-X (Version None)
Quarter: 2011Q3

REPORT INFORMATION
  Report Type: 
  Country: None (occurrence: None)
  Receive Date: 20110803
  Receipt Date: 20110721
  Transmission Date: 20111222
  Serious: Yes (Hospitalization)
  Sender: FDA-Public Use
  Company Number: GB-CELGENEUS-167-C5013-10120631

PATIENT
  Sex: Female
  Weight: 66.7 kg

DRUGS (27)
  1. DEXAMETHASONE [Suspect]
     Route: 065
     Dates: end: 20101107
  2. BENDROFLUMETHIAZIDE [Concomitant]
     Indication: HYPERTENSION
     Dosage: 2.5 MILLIGRAM
     Route: 048
     Dates: start: 20010101, end: 20101208
  3. SIMVASTATIN [Concomitant]
     Indication: HYPERTENSION
     Dosage: 40 MILLIGRAM
     Route: 048
     Dates: end: 20101231
  4. SODIUM CLODRONATE [Concomitant]
     Indication: PROPHYLAXIS
     Dosage: 1600 MILLIGRAM
     Route: 048
     Dates: start: 20091110, end: 20101209
  5. THYROXIN [Concomitant]
     Indication: HYPOTHYROIDISM
     Dosage: 100 MICROGRAM
     Route: 048
     Dates: start: 19980101, end: 20101231
  6. METFORMIN HCL [Concomitant]
     Dosage: 2550 MILLIGRAM
     Route: 048
     Dates: start: 20010101, end: 20101204
  7. ACYCLOVIR [Concomitant]
     Indication: INFECTION PROPHYLAXIS
     Dosage: 600 MILLIGRAM
     Route: 048
     Dates: start: 20091110, end: 20101204
  8. ACETAMINOPHEN [Concomitant]
     Indication: BACK PAIN
     Dosage: 4 GRAM
     Route: 048
     Dates: start: 20090101, end: 20101214
  9. ACETAMINOPHEN [Concomitant]
     Dosage: 4 GRAM
     Route: 041
     Dates: start: 20101215, end: 20101228
  10. BECLOMETHASONE DIPROPIONATE [Concomitant]
     Route: 055
     Dates: start: 20010101, end: 20100101
  11. VITAMIN A AND D [Concomitant]
     Indication: VITAMIN SUPPLEMENTATION
     Dosage: 1 CAPSULE
     Route: 048
     Dates: end: 20101210
  12. LANSOPRAZOLE [Concomitant]
     Indication: PROPHYLAXIS
     Dosage: 30 MILLIGRAM
     Route: 048
     Dates: start: 20091110, end: 20101204
  13. TINZAPARIN [Concomitant]
     Indication: THROMBOSIS PROPHYLAXIS
     Dosage: 4500 IU (INTERNATIONAL UNIT)
     Route: 058
     Dates: start: 20091110
  14. METOCLOPRAMIDE [Concomitant]
     Dosage: 60 MILLIGRAM
     Route: 048
     Dates: start: 20091110, end: 20101217
  15. SANDO K [Concomitant]
     Dosage: 1-2 TABLETS
     Route: 045
     Dates: start: 20101214, end: 20101214
  16. LENALIDOMIDE [Suspect]
     Route: 048
     Dates: end: 20101106
  17. AMITRIPTYLINE HCL [Concomitant]
     Indication: DEPRESSION
     Dosage: 75 MILLIGRAM
     Route: 048
     Dates: start: 20100118, end: 20101203
  18. POTASSIUM [Concomitant]
     Indication: CARDIAC DISORDER
     Dosage: 20-40 MMOL AS NEEDED
     Route: 041
     Dates: start: 20101215, end: 20101222
  19. ALBUTEROL [Concomitant]
     Route: 055
     Dates: start: 20010101, end: 20101208
  20. IRBESARTAN [Concomitant]
     Indication: HYPERTENSION
     Route: 048
     Dates: start: 20100201, end: 20101209
  21. COTRIM [Concomitant]
     Indication: INFECTION PROPHYLAXIS
     Route: 048
     Dates: start: 20091110, end: 20101201
  22. CODEINE SULFATE [Concomitant]
     Indication: BACK PAIN
     Route: 048
     Dates: start: 20090101, end: 20101201
  23. AMITRIPTYLINE HCL [Concomitant]
     Dosage: 150 MILLIGRAM
     Route: 048
     Dates: start: 20100125, end: 20101203
  24. POTASSIUM [Concomitant]
     Route: 045
     Dates: start: 20101208, end: 20101216
  25. LENALIDOMIDE [Suspect]
     Indication: MULTIPLE MYELOMA
     Dosage: 10 MILLIGRAM
     Route: 048
     Dates: start: 20091110
  26. DEXAMETHASONE [Suspect]
     Indication: MULTIPLE MYELOMA
     Dosage: 40 MILLIGRAM
     Route: 065
     Dates: start: 20091110
  27. CYANOCOBALAMIN [Concomitant]
     Indication: VITAMIN B12 DEFICIENCY
     Dosage: 50 MICROGRAM
     Route: 048
     Dates: start: 20090301, end: 20101204

REACTIONS (9)
  - LOWER RESPIRATORY TRACT INFECTION [None]
  - POST PROCEDURAL COMPLICATION [None]
  - DISEASE PROGRESSION [None]
  - FAT EMBOLISM [None]
  - PULMONARY EMBOLISM [None]
  - CARDIAC ARREST [None]
  - PNEUMONIA [None]
  - FEMUR FRACTURE [None]
  - PNEUMONIA ASPIRATION [None]
